FAERS Safety Report 6190058-4 (Version None)
Quarter: 2009Q2

REPORT INFORMATION
  Report Type: 
  Country: None (occurrence: None)
  Receive Date: 20090514
  Receipt Date: 20070925
  Transmission Date: 20091009
  Serious: Yes (Hospitalization, Other)
  Sender: FDA-Public Use
  Company Number: US-ASTRAZENECA-2007UW07708

PATIENT
  Age: 47 Year
  Sex: Male
  Weight: 92.5 kg

DRUGS (26)
  1. SEROQUEL [Suspect]
     Indication: BIPOLAR DISORDER
     Route: 048
     Dates: start: 19970801, end: 20060201
  2. SEROQUEL [Suspect]
     Indication: SLEEP DISORDER
     Route: 048
     Dates: start: 19970801, end: 20060201
  3. SEROQUEL [Suspect]
     Route: 048
     Dates: start: 19970801, end: 20060201
  4. SEROQUEL [Suspect]
     Dosage: 25-200 MG
     Route: 048
     Dates: start: 20011130, end: 20060330
  5. SEROQUEL [Suspect]
     Dosage: 25-200 MG
     Route: 048
     Dates: start: 20011130, end: 20060330
  6. SEROQUEL [Suspect]
     Dosage: 25-200 MG
     Route: 048
     Dates: start: 20011130, end: 20060330
  7. RISPERDAL [Suspect]
     Indication: BIPOLAR DISORDER
     Route: 048
     Dates: start: 20060131, end: 20070115
  8. RISPERDAL [Suspect]
     Dates: start: 20060201, end: 20061001
  9. ZOLOFT [Concomitant]
     Dosage: 50-100 MG
     Route: 048
  10. TRAZODONE HCL [Concomitant]
     Route: 048
  11. DIAZEPAM [Concomitant]
     Route: 048
  12. CHLORDIAZEP [Concomitant]
     Dosage: STRENGTH 10-25 MG
     Route: 048
  13. PROPRANOLOL [Concomitant]
     Route: 048
  14. ULTRAM [Concomitant]
     Route: 048
  15. CLONIDINE [Concomitant]
     Route: 048
  16. CEPHALEXIN [Concomitant]
     Route: 048
  17. PHENYTOIN [Concomitant]
     Route: 048
  18. VIT-STR/IRON [Concomitant]
     Route: 048
  19. VIT-THIAMINE [Concomitant]
     Route: 065
  20. ACETA [Concomitant]
     Route: 048
  21. ALBUTEROL [Concomitant]
     Route: 055
  22. LANSOPRAZOLE [Concomitant]
     Route: 048
  23. PHENOBARB [Concomitant]
     Route: 048
  24. ATENOLOL [Concomitant]
     Dosage: STRENGTH 25MG-100MG
     Route: 048
  25. VIOKASE [Concomitant]
     Route: 048
  26. NALTREXONE HYDROCHLORIDE [Concomitant]
     Dosage: STRENGTH 50MG
     Route: 048

REACTIONS (13)
  - ALCOHOLISM [None]
  - BIPOLAR DISORDER [None]
  - CONTUSION [None]
  - GYNAECOMASTIA [None]
  - HERPES ZOSTER [None]
  - HYPERGLYCAEMIA [None]
  - PANCREATITIS [None]
  - POLYURIA [None]
  - SUICIDAL BEHAVIOUR [None]
  - SUICIDAL IDEATION [None]
  - SUICIDE ATTEMPT [None]
  - THROMBOCYTOPENIA [None]
  - URINARY TRACT INFECTION [None]
